FAERS Safety Report 4959925-0 (Version None)
Quarter: 2006Q1

REPORT INFORMATION
  Report Type: 
  Country: None (occurrence: None)
  Receive Date: 20060331
  Receipt Date: 20051123
  Transmission Date: 20060701
  Serious: Yes (Hospitalization, Other)
  Sender: FDA-Public Use
  Company Number: US-MERCK-0511USA04412

PATIENT
  Age: 58 Year
  Sex: Female
  Weight: 82 kg

DRUGS (1)
  1. VIOXX [Suspect]
     Indication: MONARTHRITIS
     Route: 048
     Dates: start: 19990101, end: 20030718

REACTIONS (9)
  - ARTHROPATHY [None]
  - ASTHENIA [None]
  - BACK PAIN [None]
  - BREAST DISORDER [None]
  - CEREBROVASCULAR ACCIDENT [None]
  - NERVE INJURY [None]
  - ROAD TRAFFIC ACCIDENT [None]
  - THYROID DISORDER [None]
  - TRANSIENT ISCHAEMIC ATTACK [None]
